FAERS Safety Report 5889812-5 (Version None)
Quarter: 2008Q3

REPORT INFORMATION
  Report Type: 
  Country: None (occurrence: None)
  Receive Date: 20080919
  Receipt Date: 20080912
  Transmission Date: 20090109
  Serious: Yes (Hospitalization)
  Sender: FDA-Public Use
  Company Number: PHHO2008US10695

PATIENT
  Age: 68 Year
  Sex: Male
  Weight: 189 kg

DRUGS (24)
  1. RAD 666 RAD+TAB+CMAS [Suspect]
     Indication: PROSTATE CANCER METASTATIC
     Dosage: 5 MG DAILY
     Route: 048
     Dates: start: 20080619, end: 20080831
  2. ZOMETA [Suspect]
     Dosage: 4 MG EVERY 6-8 WEEKS
     Dates: start: 20030101, end: 20080730
  3. BEVACIZUMAB [Suspect]
     Indication: PROSTATE CANCER METASTATIC
     Dosage: 1390 MG / DAY
     Route: 042
     Dates: start: 20080619, end: 20080820
  4. BISPHOSPHONATES [Suspect]
  5. DOCETAXEL [Concomitant]
     Indication: PROSTATE CANCER METASTATIC
     Dosage: 144 MG / DAY
     Route: 042
     Dates: start: 20080619, end: 20080820
  6. ACYCLOVIR [Concomitant]
  7. ASPIRIN [Concomitant]
     Dosage: 81 MG, QD
     Route: 048
  8. CELEXA [Concomitant]
     Dosage: 60 MG, QD
     Route: 048
  9. CLINDAMYCIN HCL [Concomitant]
     Dosage: 150 MG 2 X TID
     Route: 048
  10. DURAGESIC-100 [Concomitant]
     Dosage: 50 MCG EVERY 72H
     Route: 062
  11. NEURONTIN [Concomitant]
  12. SENNA [Concomitant]
  13. ZOFRAN [Concomitant]
     Indication: NAUSEA
     Dosage: 8 MG, Q8H PRN
     Route: 048
  14. LUPRON [Concomitant]
  15. OSCAL 500-D [Concomitant]
     Dosage: 500 MG, BID
     Route: 048
  16. VALTREX [Concomitant]
  17. AMBIEN [Concomitant]
     Dosage: 10 MG, QHS
     Route: 048
  18. AVAPRO [Concomitant]
     Dosage: 150 MG, QD
     Route: 048
  19. COMPAZINE [Concomitant]
     Dosage: 10 MG Q8H PRN
     Route: 048
  20. COLACE [Concomitant]
     Dosage: 100 MG, BID
     Route: 048
  21. FOLGARD [Concomitant]
     Dosage: 1 TAB DAILY
     Route: 048
  22. GABAPENTIN [Concomitant]
     Dosage: 600 MG, 4QD
     Route: 048
  23. PREVACID [Concomitant]
     Dosage: 30 MG, QD
     Route: 048
  24. SENOKOT [Concomitant]
     Dosage: 2 TAB DAILY PRN
     Route: 048

REACTIONS (3)
  - NEUTROPENIA [None]
  - OSTEONECROSIS [None]
  - PAIN IN JAW [None]
